FAERS Safety Report 24928581 (Version 1)
Quarter: 2025Q1

REPORT INFORMATION
  Report Type: Report from Study
  Country: US (occurrence: US)
  Receive Date: 20250205
  Receipt Date: 20250205
  Transmission Date: 20250408
  Serious: Yes (Death)
  Sender: HELSINN HEALTHCARE
  Company Number: US-HBP-2025US031647

PATIENT
  Sex: Male

DRUGS (9)
  1. VALCHLOR [Suspect]
     Active Substance: MECHLORETHAMINE
     Indication: Cutaneous T-cell lymphoma
     Dosage: UNK, QD
     Route: 061
     Dates: start: 20220914
  2. LEVOTHYROXINE SODIUM [Concomitant]
     Active Substance: LEVOTHYROXINE SODIUM
  3. METOPROLOL TARTRATE [Concomitant]
     Active Substance: METOPROLOL TARTRATE
  4. ASPIRIN [Concomitant]
     Active Substance: ASPIRIN
  5. VITAMINS [Concomitant]
     Active Substance: VITAMINS
  6. FISH OIL [Concomitant]
     Active Substance: FISH OIL
  7. TAMSULOSIN HYDROCHLORIDE [Concomitant]
     Active Substance: TAMSULOSIN HYDROCHLORIDE
  8. NEUPRO [Concomitant]
     Active Substance: ROTIGOTINE
     Route: 062
  9. PRIMIDONE [Concomitant]
     Active Substance: PRIMIDONE

REACTIONS (1)
  - Death [Fatal]
